FAERS Safety Report 16210407 (Version 4)
Quarter: 2019Q4

REPORT INFORMATION
  Report Type: Report from Study
  Country: CA (occurrence: CA)
  Receive Date: 20190418
  Receipt Date: 20191026
  Transmission Date: 20200122
  Serious: Yes (Hospitalization)
  Sender: FDA-Public Use
  Company Number: PHHY2019CA085260

PATIENT
  Age: 70 Year
  Sex: Female

DRUGS (3)
  1. GLEEVEC [Suspect]
     Active Substance: IMATINIB MESYLATE
     Dosage: UNK
     Route: 048
  2. GLEEVEC [Suspect]
     Active Substance: IMATINIB MESYLATE
     Indication: GASTROINTESTINAL STROMAL TUMOUR
     Dosage: 400 MG, QD
     Route: 048
     Dates: start: 20190221
  3. PRAMIPEXOLE. [Concomitant]
     Active Substance: PRAMIPEXOLE
     Indication: RESTLESS LEGS SYNDROME
     Route: 065

REACTIONS (17)
  - Peripheral swelling [Unknown]
  - Coagulopathy [Unknown]
  - Erythema [Unknown]
  - Swelling of eyelid [Unknown]
  - Oedema peripheral [Not Recovered/Not Resolved]
  - Muscle spasms [Not Recovered/Not Resolved]
  - Hypersensitivity [Unknown]
  - Epistaxis [Not Recovered/Not Resolved]
  - Dry skin [Unknown]
  - Strabismus [Unknown]
  - Joint swelling [Recovering/Resolving]
  - Pain [Unknown]
  - Haemorrhoidal haemorrhage [Not Recovered/Not Resolved]
  - Cyst [Unknown]
  - Pruritus [Unknown]
  - Eye swelling [Recovering/Resolving]
  - Swelling face [Unknown]

NARRATIVE: CASE EVENT DATE: 201907
